FAERS Safety Report 21310460 (Version 2)
Quarter: 2022Q3

REPORT INFORMATION
  Report Type: Spontaneous
  Country: US (occurrence: US)
  Receive Date: 20220909
  Receipt Date: 20220913
  Transmission Date: 20221027
  Serious: Yes (Hospitalization, Other)
  Sender: FDA-Public Use
  Company Number: US-BRISTOL-MYERS SQUIBB COMPANY-2022-100922

PATIENT
  Age: 88 Year
  Sex: Female
  Weight: 68.49 kg

DRUGS (1)
  1. REVLIMID [Suspect]
     Active Substance: LENALIDOMIDE
     Indication: Plasma cell myeloma
     Dosage: D1-21 ON THEN 7 DAYS OFF
     Route: 048
     Dates: start: 20220819

REACTIONS (7)
  - Peripheral swelling [Unknown]
  - Joint swelling [Unknown]
  - Chest pain [Unknown]
  - Urinary retention [Unknown]
  - Angina pectoris [Unknown]
  - Oedema [Unknown]
  - Bone pain [Unknown]

NARRATIVE: CASE EVENT DATE: 20220830
